FAERS Safety Report 7824977-7 (Version None)
Quarter: 2011Q4

REPORT INFORMATION
  Report Type: 
  Country: None (occurrence: None)
  Receive Date: 20111019
  Receipt Date: 20110325
  Transmission Date: 20120403
  Serious: No
  Sender: FDA-Public Use
  Company Number: US-BRISTOL-MYERS SQUIBB COMPANY-15635816

PATIENT
  Age: 85 Year
  Sex: Female
  Weight: 79 kg

DRUGS (4)
  1. RIBAVIRIN [Concomitant]
  2. AVALIDE [Suspect]
  3. TRILIPIX [Concomitant]
  4. CRESTOR [Concomitant]

REACTIONS (3)
  - BLOOD PRESSURE INCREASED [None]
  - SYNCOPE [None]
  - SWELLING [None]
